FAERS Safety Report 24193534 (Version 1)
Quarter: 2024Q3

REPORT INFORMATION
  Report Type: Spontaneous
  Country: CN (occurrence: CN)
  Receive Date: 20240809
  Receipt Date: 20240809
  Transmission Date: 20241016
  Serious: Yes (Other)
  Sender: RANBAXY
  Company Number: CN-SUN PHARMACEUTICAL INDUSTRIES LTD-2024R1-459102

PATIENT
  Age: 71 Year
  Sex: Male

DRUGS (5)
  1. DOXORUBICIN [Suspect]
     Active Substance: DOXORUBICIN
     Indication: Peripheral T-cell lymphoma unspecified stage III
     Dosage: 20 MILLIGRAM
     Route: 042
  2. CYCLOPHOSPHAMIDE [Suspect]
     Active Substance: CYCLOPHOSPHAMIDE
     Indication: Peripheral T-cell lymphoma unspecified stage III
     Dosage: 1 GRAM
     Route: 042
  3. VINCRISTINE [Suspect]
     Active Substance: VINCRISTINE
     Indication: Peripheral T-cell lymphoma unspecified stage III
     Dosage: 2 MILLIGRAM
     Route: 042
  4. ETOPOSIDE [Suspect]
     Active Substance: ETOPOSIDE
     Indication: Peripheral T-cell lymphoma unspecified stage III
     Dosage: 0.1 GRAM
     Route: 042
  5. PREDNISONE [Suspect]
     Active Substance: PREDNISONE
     Indication: Peripheral T-cell lymphoma unspecified stage III
     Dosage: 60 MILLIGRAM, DAILY
     Route: 065

REACTIONS (3)
  - Drug intolerance [Unknown]
  - Acute kidney injury [Unknown]
  - Cardiac failure [Unknown]
